FAERS Safety Report 15803447 (Version 2)
Quarter: 2019Q1

REPORT INFORMATION
  Report Type: Spontaneous
  Country: KR (occurrence: KR)
  Receive Date: 20190109
  Receipt Date: 20190201
  Transmission Date: 20190417
  Serious: Yes (Life-Threatening, Hospitalization, Disabling)
  Sender: FDA-Public Use
  Company Number: KR-BIOCRYST PHARMACEUTICALS, INC.-2019BCR00005

PATIENT
  Age: 17 Year
  Sex: Male

DRUGS (1)
  1. PERAMIFLU [Suspect]
     Active Substance: PERAMIVIR
     Indication: INFLUENZA VIRUS TEST POSITIVE
     Dosage: INJECTION
     Dates: start: 20181222, end: 20181222

REACTIONS (3)
  - Anxiety [Unknown]
  - Fall [Unknown]
  - Hallucination [Unknown]

NARRATIVE: CASE EVENT DATE: 20181223
